FAERS Safety Report 8819367 (Version 1)
Quarter: 2012Q4

REPORT INFORMATION
  Report Type: Spontaneous
  Country: DE (occurrence: None)
  Receive Date: 20121003
  Receipt Date: 20121003
  Transmission Date: 20130627
  Serious: Yes (Death, Other)
  Sender: FDA-Public Use
  Company Number: FK201202750

PATIENT
  Age: 52 Year
  Sex: Male

DRUGS (1)
  1. HEPARIN [Suspect]
     Indication: PRODUCT USED FOR UNKNOWN INDICATION
     Route: 042

REACTIONS (22)
  - Heparin-induced thrombocytopenia [None]
  - Haemorrhage [None]
  - Multi-organ failure [None]
  - Respiratory gas exchange disorder [None]
  - Liver function test abnormal [None]
  - Renal function test abnormal [None]
  - Blood lactic acid increased [None]
  - Hyperkalaemia [None]
  - Metabolic acidosis [None]
  - Pulmonary embolism [None]
  - Aortic thrombosis [None]
  - Mesenteric artery thrombosis [None]
  - Renal artery thrombosis [None]
  - Truncus coeliacus thrombosis [None]
  - Renal infarct [None]
  - Hypoperfusion [None]
  - Liver disorder [None]
  - Spleen disorder [None]
  - Continuous haemodiafiltration [None]
  - Renal failure acute [None]
  - Acute hepatic failure [None]
  - Tracheal haemorrhage [None]
